FAERS Safety Report 24312092 (Version 2)
Quarter: 2024Q4

REPORT INFORMATION
  Report Type: Spontaneous
  Country: CH (occurrence: CH)
  Receive Date: 20240912
  Receipt Date: 20241108
  Transmission Date: 20250115
  Serious: Yes (Other)
  Sender: MYLAN
  Company Number: CH-MYLANLABS-2024M1079869

PATIENT
  Age: 47 Year
  Sex: Male
  Weight: 87 kg

DRUGS (8)
  1. ARIXTRA [Suspect]
     Active Substance: FONDAPARINUX SODIUM
     Indication: Coagulopathy
     Dosage: 7.5 MILLIGRAM, QD
     Route: 065
     Dates: start: 20240110, end: 20240209
  2. ARIXTRA [Suspect]
     Active Substance: FONDAPARINUX SODIUM
     Indication: Antiphospholipid syndrome
  3. ARIXTRA [Suspect]
     Active Substance: FONDAPARINUX SODIUM
     Indication: Coagulopathy
     Dosage: 10 MILLIGRAM, QD
     Route: 065
     Dates: start: 20240209
  4. ARIXTRA [Suspect]
     Active Substance: FONDAPARINUX SODIUM
     Indication: Antiphospholipid syndrome
  5. CETIRIZINE [Concomitant]
     Active Substance: CETIRIZINE HYDROCHLORIDE
     Dosage: 10 MILLIGRAM (1-2X 10MG )
     Route: 065
     Dates: end: 202405
  6. BILASTINE [Concomitant]
     Active Substance: BILASTINE
     Dosage: UNK
     Route: 065
     Dates: end: 202405
  7. VITAMIN D [Concomitant]
     Active Substance: VITAMIN D NOS
     Indication: Vitamin D deficiency
     Dosage: 4000 INTERNATIONAL UNIT, QD
     Route: 065
  8. Ferrum Hausmann [Concomitant]
     Indication: Iron deficiency
     Dosage: 100 MILLIGRAM (EVERY 2ND DAY)
     Route: 065

REACTIONS (6)
  - Drug ineffective [Unknown]
  - Weight increased [Unknown]
  - Chest discomfort [Recovered/Resolved]
  - Headache [Recovered/Resolved]
  - Off label use [Unknown]
  - Prescribed overdose [Unknown]
